FAERS Safety Report 9329704 (Version 1)
Quarter: 2013Q2

REPORT INFORMATION
  Report Type: Spontaneous
  Country: US (occurrence: US)
  Receive Date: 20130604
  Receipt Date: 20130604
  Transmission Date: 20140414
  Serious: No
  Sender: FDA-Public Use
  Company Number: US-SANOFI-AVENTIS-2012SA091077

PATIENT
  Age: 57 Year
  Sex: Female

DRUGS (11)
  1. LANTUS [Suspect]
     Indication: TYPE 2 DIABETES MELLITUS
  2. APIDRA SOLOSTAR [Suspect]
     Indication: TYPE 2 DIABETES MELLITUS
     Dosage: DOSE:10 UNIT(S)
     Route: 051
     Dates: start: 201212
  3. SOLOSTAR [Suspect]
  4. LANTUS SOLOSTAR [Suspect]
     Indication: TYPE 2 DIABETES MELLITUS
     Dosage: DOSE:70 UNIT(S)
     Route: 051
     Dates: start: 201208
  5. SOLOSTAR [Suspect]
     Dates: start: 201208
  6. JANUVIA [Concomitant]
  7. HYDROCHLOROTHIAZIDE [Concomitant]
  8. COLCHICINE [Concomitant]
     Dosage: AS NEEDED
  9. ASPIRIN [Concomitant]
  10. ALPHA LIPOIC ACID [Concomitant]
  11. CHROMIUM [Concomitant]

REACTIONS (8)
  - Palpitations [Unknown]
  - Blood glucose increased [Recovered/Resolved]
  - Dehydration [Unknown]
  - Pain [Unknown]
  - Sensory disturbance [Unknown]
  - Gout [Unknown]
  - Gait disturbance [Unknown]
  - Nasopharyngitis [Unknown]
